FAERS Safety Report 7078773 (Version 3)
Quarter: 2014Q3

REPORT INFORMATION
  Report Type: Spontaneous
  Country: US (occurrence: None)
  Receive Date: 20090805
  Receipt Date: 20140926
  Transmission Date: 20150326
  Serious: Yes (Other)
  Sender: FDA-Public Use
  Company Number: 2009S1005841

PATIENT
  Age: 52 Year
  Sex: Female

DRUGS (8)
  1. GOLYTELY [Suspect]
     Active Substance: POLYETHYLENE GLYCOL 3350\POTASSIUM CHLORIDE\SODIUM BICARBONATE\SODIUM CHLORIDE\SODIUM SULFATE ANHYDROUS
     Indication: COLONOSCOPY
     Route: 048
  2. LISNINOPRIL [Concomitant]
  3. ACETYLALICYLIC ACID(ACETYLSSALICYLIC ACID) [Concomitant]
  4. MAGNESIUM CITRATE. [Suspect]
     Active Substance: MAGNESIUM CITRATE
     Indication: COLONOSCOPY
     Route: 048
  5. THALIDOMIDE [Concomitant]
     Active Substance: THALIDOMIDE
  6. PHOSPHO-SODA [Suspect]
     Active Substance: SODIUM PHOSPHATE, DIBASIC\SODIUM PHOSPHATE, MONOBASIC
     Indication: COLONOSCOPY
     Dosage: TOTAL, ORAL
     Route: 048
     Dates: start: 200603, end: 200603
  7. LASIX/00032601/FUROSEMIDE) [Concomitant]
  8. ATIVAN(LORAZEPAM) [Concomitant]

REACTIONS (5)
  - Osteolysis [None]
  - Constipation [None]
  - Renal failure chronic [None]
  - Haemorrhoids [None]
  - Paraesthesia [None]

NARRATIVE: CASE EVENT DATE: 200705
